FAERS Safety Report 7344892-5 (Version None)
Quarter: 2011Q1

REPORT INFORMATION
  Report Type: 
  Country: None (occurrence: None)
  Receive Date: 20110308
  Receipt Date: 20110308
  Transmission Date: 20110831
  Serious: Yes (Death, Hospitalization)
  Sender: FDA-Public Use
  Company Number: None

PATIENT
  Sex: Female
  Weight: 90.7194 kg

DRUGS (14)
  1. PAXIL [Concomitant]
  2. POTASSIUM CHLORIDE [Concomitant]
  3. MULTI-VITAMIN [Concomitant]
  4. ACETAMINOPHEN [Concomitant]
  5. HYTRIN [Concomitant]
  6. ALPRAZOLAM [Concomitant]
  7. FISH OIL [Concomitant]
  8. GLYBURIDE [Concomitant]
  9. ASPIRIN [Concomitant]
  10. ERLOTINIB 150 MG, GENENTECH [Suspect]
     Indication: NON-SMALL CELL LUNG CANCER
     Dosage: 150 MG ORAL, DAILY
     Route: 048
     Dates: start: 20110120, end: 20110211
  11. CALCIUM GLUCONATE [Concomitant]
  12. B-COMPLEX VITAMINS [Concomitant]
  13. SYNTHROID [Concomitant]
  14. LASIX [Concomitant]

REACTIONS (8)
  - BLOOD CREATININE INCREASED [None]
  - NON-SMALL CELL LUNG CANCER [None]
  - OEDEMA PERIPHERAL [None]
  - NEOPLASM MALIGNANT [None]
  - RESPIRATORY FAILURE [None]
  - BLOOD POTASSIUM INCREASED [None]
  - PNEUMONIA [None]
  - HYPOTENSION [None]
